FAERS Safety Report 5361643-4 (Version None)
Quarter: 2007Q2

REPORT INFORMATION
  Report Type: 
  Country: None (occurrence: None)
  Receive Date: 20070615
  Receipt Date: 20070615
  Transmission Date: 20071010
  Serious: Yes (Death)
  Sender: FDA-Public Use
  Company Number: None

PATIENT
  Age: 57 Year
  Sex: Male

DRUGS (2)
  1. MOXIFLOXACIN HCL [Suspect]
     Indication: INFECTION
     Dosage: 400MG EVERY DAY PO
     Route: 048
     Dates: start: 20070511, end: 20070516
  2. ZIPRASIDONE [Suspect]
     Indication: SCHIZOPHRENIA, PARANOID TYPE
     Dosage: 80MG HS PO
     Route: 048

REACTIONS (1)
  - MYOCARDIAL INFARCTION [None]
